FAERS Safety Report 9355445 (Version 3)
Quarter: 2014Q2

REPORT INFORMATION
  Report Type: Report from Study
  Country: JP (occurrence: JP)
  Receive Date: 20130619
  Receipt Date: 20140428
  Transmission Date: 20141212
  Serious: Yes (Other)
  Sender: FDA-Public Use
  Company Number: JP-VERTEX PHARMACEUTICALS INC-2013-007183

PATIENT
  Age: 62 Year
  Sex: Female

DRUGS (13)
  1. VX-950 (TELAPREVIR) [Suspect]
     Indication: CHRONIC HEPATITIS C
     Dosage: 1500 MG, QD
     Route: 048
     Dates: start: 20120424, end: 20120615
  2. VX-950 (TELAPREVIR) [Suspect]
     Dosage: 750 MG, QD
     Route: 048
     Dates: start: 20120616, end: 20120616
  3. VX-950 (TELAPREVIR) [Suspect]
     Dosage: 1500 MG, QD
     Route: 048
     Dates: start: 20120617, end: 20120718
  4. REBETOL [Suspect]
     Indication: CHRONIC HEPATITIS C
     Dosage: 600 MG, QD
     Route: 048
     Dates: start: 20120424, end: 20120615
  5. REBETOL [Suspect]
     Dosage: 300 MG, QD
     Route: 048
     Dates: start: 20120616, end: 20120616
  6. REBETOL [Suspect]
     Dosage: 600 MG, QD
     Route: 048
     Dates: start: 20120617, end: 20120717
  7. REBETOL [Suspect]
     Dosage: 400 MG, QD
     Route: 048
     Dates: start: 20120718, end: 20120911
  8. REBETOL [Suspect]
     Dosage: 600 MG, QD
     Route: 048
     Dates: start: 20120912, end: 20121009
  9. PEGINTERFERON ALFA-2B [Suspect]
     Indication: CHRONIC HEPATITIS C
     Dosage: 1.5 ?G/KG, QW
     Route: 058
     Dates: start: 20120424, end: 20120430
  10. PEGINTERFERON ALFA-2B [Suspect]
     Dosage: 0.89 ?G/KG, QW
     Route: 058
     Dates: start: 20120501, end: 20120604
  11. PEGINTERFERON ALFA-2B [Suspect]
     Dosage: 1.0 ?G/KG, QW
     Route: 058
     Dates: start: 20120605, end: 20120710
  12. PEGINTERFERON ALFA-2B [Suspect]
     Dosage: 0.89 ?G/KG, QW
     Route: 058
     Dates: start: 20120718, end: 20121003
  13. MUCOSTA [Concomitant]
     Dosage: 100 MG, QD, PRN
     Route: 048
     Dates: end: 20120711

REACTIONS (2)
  - White blood cell count decreased [Recovered/Resolved]
  - Neutrophil count decreased [Recovered/Resolved]
